FAERS Safety Report 4742934-4 (Version None)
Quarter: 2005Q3

REPORT INFORMATION
  Report Type: 
  Country: None (occurrence: None)
  Receive Date: 20050810
  Receipt Date: 20050810
  Transmission Date: 20060218
  Serious: Yes (Disabling)
  Sender: FDA-Public Use
  Company Number: None

PATIENT
  Sex: Female
  Weight: 48.5349 kg

DRUGS (2)
  1. PAXIL [Suspect]
     Indication: ANXIETY
     Dosage: 20 OR 30 MG   ONCE A DAY  ORAL
     Route: 048
     Dates: start: 19970301, end: 20050814
  2. PAXIL [Suspect]
     Indication: DEPRESSION
     Dosage: 20 OR 30 MG   ONCE A DAY  ORAL
     Route: 048
     Dates: start: 19970301, end: 20050814

REACTIONS (5)
  - ANXIETY [None]
  - DRUG WITHDRAWAL SYNDROME [None]
  - IMPAIRED WORK ABILITY [None]
  - INSOMNIA [None]
  - SUICIDAL IDEATION [None]
